FAERS Safety Report 8402010-6 (Version None)
Quarter: 2012Q2

REPORT INFORMATION
  Report Type: 
  Country: None (occurrence: None)
  Receive Date: 20120601
  Receipt Date: 20120523
  Transmission Date: 20120825
  Serious: Yes (Hospitalization)
  Sender: FDA-Public Use
  Company Number: US-SANOFI-AVENTIS-2012SA038337

PATIENT
  Age: 79 Year
  Sex: Female
  Weight: 56.24 kg

DRUGS (16)
  1. NORPACE [Suspect]
     Route: 048
  2. PLAVIX [Concomitant]
  3. DABIGATRAN ETEXILATE [Concomitant]
  4. NORPACE [Suspect]
     Route: 048
  5. COZAAR [Suspect]
     Route: 065
  6. NORPACE [Suspect]
     Indication: ATRIAL FIBRILLATION
     Dosage: FORM: MODIFIED-RELEASE CAPSULE, SOFT
     Route: 048
  7. NORPACE [Suspect]
     Route: 048
  8. CARDIZEM [Concomitant]
  9. COENZYME Q10 [Concomitant]
  10. LEVOTHYROXINE SODIUM [Concomitant]
  11. CALCITONIN SALMON [Concomitant]
  12. NORPACE [Suspect]
     Route: 048
  13. AMIODARONE HYDROCHLORIDE [Suspect]
     Route: 065
  14. MULTAQ [Suspect]
     Indication: ATRIAL FIBRILLATION
     Route: 065
     Dates: start: 20090101
  15. COZAAR [Suspect]
     Route: 065
  16. PRILOSEC [Concomitant]

REACTIONS (8)
  - DRY MOUTH [None]
  - FEMUR FRACTURE [None]
  - FALL [None]
  - SPINAL FRACTURE [None]
  - BLOOD CHOLESTEROL INCREASED [None]
  - ANAEMIA [None]
  - PAIN [None]
  - HIP FRACTURE [None]
